FAERS Safety Report 9735432 (Version 1)
Quarter: 2013Q4

REPORT INFORMATION
  Report Type: Spontaneous
  Country: US (occurrence: US)
  Receive Date: 20131206
  Receipt Date: 20131206
  Transmission Date: 20140711
  Serious: No
  Sender: FDA-Public Use
  Company Number: US-GILEAD-2009-0022776

PATIENT
  Age: 37 Year
  Sex: Male
  Weight: 106.14 kg

DRUGS (12)
  1. LETAIRIS [Suspect]
     Indication: PULMONARY ARTERIAL HYPERTENSION
     Route: 048
     Dates: start: 20090621
  2. LETAIRIS [Suspect]
     Route: 048
     Dates: start: 20090504, end: 20090620
  3. REVATIO [Concomitant]
  4. COUMADIN [Concomitant]
  5. TRACLEER [Concomitant]
  6. LASIX [Concomitant]
  7. DILTIAZEM [Concomitant]
  8. TIAZAC [Concomitant]
  9. DIGOXIN [Concomitant]
  10. ZOCOR [Concomitant]
  11. BENADRYL ALLERGY/SINUS [Concomitant]
  12. CLARITIN-D 12 HR [Concomitant]

REACTIONS (2)
  - Chest pain [Recovered/Resolved]
  - Flushing [Recovered/Resolved]
